FAERS Safety Report 7138729-7 (Version None)
Quarter: 2010Q4

REPORT INFORMATION
  Report Type: 
  Country: None (occurrence: None)
  Receive Date: 20101201
  Receipt Date: 20101201
  Transmission Date: 20110411
  Serious: Yes (Life-Threatening, Hospitalization)
  Sender: FDA-Public Use
  Company Number: None

PATIENT
  Age: 91 Year
  Sex: Female
  Weight: 52.2 kg

DRUGS (14)
  1. PRADAXA [Suspect]
     Indication: ARRHYTHMIA
     Dosage: 150 MG BID
     Dates: end: 20101126
  2. ALCIUM CARBONATE / VIT D [Concomitant]
  3. VITAMIN D [Concomitant]
  4. EZETIMIBE [Concomitant]
  5. ASONE NASAL INHALER [Concomitant]
  6. HYDROCHLOROTHIAZIDE [Concomitant]
  7. MEMANTINE [Concomitant]
  8. METOPROLOL SUCCINATE SR [Concomitant]
  9. ACTONEL [Concomitant]
  10. ARICEPT [Concomitant]
  11. MULTAQ [Concomitant]
  12. PRADAXA [Concomitant]
  13. ROSUVASTATIN [Concomitant]
  14. VALSARTAN [Concomitant]

REACTIONS (3)
  - HAEMATOCRIT DECREASED [None]
  - HAEMOGLOBIN DECREASED [None]
  - RECTAL HAEMORRHAGE [None]
